FAERS Safety Report 6144230-X (Version None)
Quarter: 2009Q2

REPORT INFORMATION
  Report Type: 
  Country: None (occurrence: None)
  Receive Date: 20090406
  Receipt Date: 20090330
  Transmission Date: 20091009
  Serious: Yes (Hospitalization)
  Sender: FDA-Public Use
  Company Number: PHHY2009GB12157

PATIENT
  Age: 64 Year
  Sex: Male

DRUGS (1)
  1. CLOZAPINE [Suspect]
     Dosage: UNK
     Route: 048
     Dates: start: 20010701, end: 20081216

REACTIONS (1)
  - FALL [None]
